FAERS Safety Report 8926466 (Version 1)
Quarter: 2012Q4

REPORT INFORMATION
  Report Type: 
  Country: FR (occurrence: DZ)
  Receive Date: 20121126
  Receipt Date: 20121126
  Transmission Date: 20130627
  Serious: Yes (Death)
  Sender: FDA-Public Use
  Company Number: DZ-MYLANLABS-2012S1024154

PATIENT
  Age: 18 Year
  Sex: Male

DRUGS (9)
  1. CYSTAGON CAPSULES [Suspect]
     Indication: CYSTINOSIS
     Route: 048
  2. CYSTAGON CAPSULES [Suspect]
     Indication: CYSTINOSIS
     Route: 048
     Dates: start: 20120703, end: 20120903
  3. LASILIX [Concomitant]
     Indication: RENAL FAILURE
     Dates: start: 20010301
  4. SECTRAL [Concomitant]
     Indication: HYPERTENSION
     Dates: start: 20010301
  5. LOPRIL [Concomitant]
     Indication: HYPERTENSION
     Dates: start: 20021226
  6. FOLIC ACID [Concomitant]
     Indication: ANAEMIA
     Dates: start: 200103
  7. CALCIUM [Concomitant]
     Indication: HYPOCALCAEMIA
  8. ALFACALCIDOL [Concomitant]
     Indication: OSTEODYSTROPHY
     Dates: start: 20010301, end: 20011226
  9. LEVOTHYROX [Concomitant]
     Dates: start: 20070605

REACTIONS (3)
  - Death [Fatal]
  - Renal failure [Fatal]
  - Nausea [Fatal]
